FAERS Safety Report 7554673-5 (Version None)
Quarter: 2011Q2

REPORT INFORMATION
  Report Type: 
  Country: None (occurrence: None)
  Receive Date: 20110610
  Receipt Date: 20110519
  Transmission Date: 20111010
  Serious: Yes (Death)
  Sender: FDA-Public Use
  Company Number: US-2011-10258

PATIENT

DRUGS (2)
  1. ANTI-THYMOCYTE GLOBULIN (ANTI-THYMOCYTE GLOBULIN) [Concomitant]
  2. BUSULFEX [Suspect]
     Indication: STEM CELL TRANSPLANT

REACTIONS (3)
  - STEM CELL TRANSPLANT [None]
  - ADENOVIRUS INFECTION [None]
  - TRANSPLANT FAILURE [None]
